FAERS Safety Report 14238277 (Version 3)
Quarter: 2018Q1

REPORT INFORMATION
  Report Type: Spontaneous
  Country: US (occurrence: US)
  Receive Date: 20171130
  Receipt Date: 20180327
  Transmission Date: 20180508
  Serious: No
  Sender: FDA-Public Use
  Company Number: US-PFIZER INC-2017510618

PATIENT
  Age: 71 Year
  Sex: Female

DRUGS (1)
  1. SUTENT [Suspect]
     Active Substance: SUNITINIB MALATE
     Indication: NEOPLASM
     Dosage: 25 MG, CYCLIC (TAKE 1 CAPSULE BY MOUTH DAILY FOR 4 WEEKS ON AND 2 WEEKS OFF)
     Route: 048
     Dates: start: 201710

REACTIONS (4)
  - Rash [Unknown]
  - Decreased appetite [Unknown]
  - Yellow skin [Unknown]
  - Fatigue [Unknown]

NARRATIVE: CASE EVENT DATE: 2017
